FAERS Safety Report 20638738 (Version 2)
Quarter: 2022Q1

REPORT INFORMATION
  Report Type: Spontaneous
  Country: US (occurrence: US)
  Receive Date: 20220325
  Receipt Date: 20220329
  Transmission Date: 20220423
  Serious: No
  Sender: FDA-Public Use
  Company Number: US-PFIZER INC-202200461207

PATIENT
  Age: 87 Year

DRUGS (2)
  1. PAXLOVID [Interacting]
     Active Substance: NIRMATRELVIR\RITONAVIR
     Indication: COVID-19
     Dosage: UNK
  2. SIMVASTATIN [Interacting]
     Active Substance: SIMVASTATIN
     Dosage: UNK

REACTIONS (1)
  - Drug interaction [Unknown]
